FAERS Safety Report 7148660-9 (Version None)
Quarter: 2010Q4

REPORT INFORMATION
  Report Type: 
  Country: None (occurrence: None)
  Receive Date: 20101123
  Receipt Date: 20101116
  Transmission Date: 20110411
  Serious: Yes (Other)
  Sender: FDA-Public Use
  Company Number: 2010MA004601

PATIENT
  Age: 21 Year
  Sex: Male
  Weight: 46 kg

DRUGS (5)
  1. OXYCODONE HCL [Suspect]
     Indication: PAIN MANAGEMENT
     Dosage: 100 MG;QD;PO
     Route: 048
  2. HYDROMORPHONE HCL [Suspect]
     Indication: BREAKTHROUGH PAIN
     Dosage: 3 MG;PRN;IV
     Route: 042
  3. GABAPENTIN [Concomitant]
  4. AMITRIPTYLINE [Concomitant]
  5. PREV MEDS [Concomitant]

REACTIONS (11)
  - DRUG EFFECT DECREASED [None]
  - DRUG WITHDRAWAL SYNDROME [None]
  - FEELING ABNORMAL [None]
  - FLUSHING [None]
  - HEART RATE INCREASED [None]
  - HYPERHIDROSIS [None]
  - LACRIMATION INCREASED [None]
  - NAUSEA [None]
  - PAIN [None]
  - VOMITING [None]
  - YAWNING [None]
